FAERS Safety Report 7238123 (Version 5)
Quarter: 2012Q4

REPORT INFORMATION
  Report Type: Report from Study
  Country: CO (occurrence: CO)
  Receive Date: 20100106
  Receipt Date: 20120917
  Transmission Date: 20130627
  Serious: Yes (Death, Life-Threatening, Hospitalization, Other)
  Sender: FDA-Public Use
  Company Number: CO-BRISTOL-MYERS SQUIBB COMPANY-14917009

PATIENT
  Age: 58 Year
  Sex: Female
  Weight: 31 kg

DRUGS (3)
  1. CETUXIMAB [Suspect]
     Indication: NON-SMALL CELL LUNG CANCER
     Dosage: 5mg/ml;recent inf-22Dec09
     Route: 042
     Dates: start: 20091123
  2. PACLITAXEL [Suspect]
     Indication: NON-SMALL CELL LUNG CANCER
     Dosage: Last inf-17Dec09, Day 1 of 21 day cycle
     Route: 042
     Dates: start: 20091123
  3. CARBOPLATIN [Suspect]
     Indication: NON-SMALL CELL LUNG CANCER
     Dosage: Last inf-17Dec09, Day 1 of 21 day cycle
1df:6 AUC
     Route: 042
     Dates: start: 20091123

REACTIONS (3)
  - Dehydration [Fatal]
  - Vomiting [Fatal]
  - Diarrhoea [Fatal]
